FAERS Safety Report 6033096-4 (Version None)
Quarter: 2009Q1

REPORT INFORMATION
  Report Type: 
  Country: None (occurrence: None)
  Receive Date: 20090105
  Receipt Date: 20071219
  Transmission Date: 20090719
  Serious: Yes (Other)
  Sender: FDA-Public Use
  Company Number: US-000018

PATIENT
  Sex: Female

DRUGS (3)
  1. MULTIHANCE [Suspect]
     Indication: NUCLEAR MAGNETIC RESONANCE IMAGING
     Dosage: 30ML ONCE INTRAVENOUS (NOT OTHERWISE SPECIFIED), 30ML INTRAVENOUS (NOT OTHERWISE SPECIFIED)
     Route: 042
     Dates: start: 20071218, end: 20071218
  2. MULTIHANCE [Suspect]
     Indication: NUCLEAR MAGNETIC RESONANCE IMAGING
     Dosage: 30ML ONCE INTRAVENOUS (NOT OTHERWISE SPECIFIED), 30ML INTRAVENOUS (NOT OTHERWISE SPECIFIED)
     Route: 042
     Dates: start: 20071218, end: 20071218
  3. MULTIHANCE [Suspect]

REACTIONS (3)
  - NAUSEA [None]
  - TACHYCARDIA [None]
  - THROAT IRRITATION [None]
